FAERS Safety Report 18323147 (Version 1)
Quarter: 2020Q3

REPORT INFORMATION
  Report Type: Spontaneous
  Country: US (occurrence: US)
  Receive Date: 20200928
  Receipt Date: 20200928
  Transmission Date: 20201103
  Serious: Yes (Death)
  Sender: FDA-Public Use
  Company Number: None

PATIENT
  Age: 36 Year
  Sex: Male
  Weight: 150 kg

DRUGS (14)
  1. BUMETANIDE. [Concomitant]
     Active Substance: BUMETANIDE
  2. NALOXEGOL [Suspect]
     Active Substance: NALOXEGOL
     Indication: CONSTIPATION
     Route: 048
     Dates: start: 20200916, end: 20200917
  3. THIAMINE. [Concomitant]
     Active Substance: THIAMINE
  4. ACETAZOLAMIDE. [Concomitant]
     Active Substance: ACETAZOLAMIDE
  5. HYDRALAZINE [Concomitant]
     Active Substance: HYDRALAZINE HYDROCHLORIDE
  6. PREDNISOLONE. [Concomitant]
     Active Substance: PREDNISOLONE
  7. FENTANYL. [Concomitant]
     Active Substance: FENTANYL
  8. SPIRONOLACTONE. [Concomitant]
     Active Substance: SPIRONOLACTONE
  9. ZOSYN [Concomitant]
     Active Substance: PIPERACILLIN SODIUM\TAZOBACTAM SODIUM
  10. AMLODIPINE [Concomitant]
     Active Substance: AMLODIPINE BESYLATE
  11. FOLIC ACID. [Concomitant]
     Active Substance: FOLIC ACID
  12. LACTULOSE. [Concomitant]
     Active Substance: LACTULOSE
  13. PROPOFOL. [Concomitant]
     Active Substance: PROPOFOL
  14. NOREPINEPHRINE. [Concomitant]
     Active Substance: NOREPINEPHRINE

REACTIONS (15)
  - Renal failure [None]
  - Oxygen saturation decreased [None]
  - Liver disorder [None]
  - Hypercapnia [None]
  - Shock [None]
  - Pneumoperitoneum [None]
  - Cholecystitis acute [None]
  - Sepsis [None]
  - Dyspnoea [None]
  - Mental status changes [None]
  - General physical health deterioration [None]
  - Asthenia [None]
  - Oedema peripheral [None]
  - Intestinal perforation [None]
  - Gastrointestinal necrosis [None]

NARRATIVE: CASE EVENT DATE: 20200917
